FAERS Safety Report 20121424 (Version 1)
Quarter: 2021Q4

REPORT INFORMATION
  Report Type: Spontaneous
  Country: US (occurrence: None)
  Receive Date: 20211125
  Receipt Date: 20211125
  Transmission Date: 20220303
  Serious: Yes (Hospitalization)
  Sender: FDA-Public Use
  Company Number: None

PATIENT
  Sex: Male
  Weight: 76.1 kg

DRUGS (3)
  1. FILGRASTIM [Suspect]
     Active Substance: FILGRASTIM
     Indication: Product used for unknown indication
     Dosage: OTHER STRENGTH : 300 MCG;?
     Dates: start: 20210926, end: 20211029
  2. IFOSFAMIDE [Suspect]
     Active Substance: IFOSFAMIDE
     Indication: Product used for unknown indication
     Dosage: 11580MG?TOTAL DOSE ADMINISTERED
     Dates: start: 20210926, end: 20211018
  3. TAXOL [Suspect]
     Active Substance: PACLITAXEL
     Indication: Product used for unknown indication
     Dosage: 200 MG/M2 ?385.8 MG IN SALINE 500?
     Dates: start: 20210926, end: 20211016

REACTIONS (2)
  - Pneumothorax spontaneous [None]
  - Metastases to lung [None]

NARRATIVE: CASE EVENT DATE: 20211022
